FAERS Safety Report 6042411-7 (Version None)
Quarter: 2009Q1

REPORT INFORMATION
  Report Type: 
  Country: None (occurrence: None)
  Receive Date: 20090116
  Receipt Date: 20090105
  Transmission Date: 20090719
  Serious: Yes (Other)
  Sender: FDA-Public Use
  Company Number: US-PFIZER INC-2009151323

PATIENT
  Age: 82 Year
  Sex: Female

DRUGS (3)
  1. ZOLOFT [Interacting]
     Indication: DEPRESSION
     Dosage: 50 MG, 1X/DAY
     Route: 048
     Dates: start: 20080601, end: 20080604
  2. DEPAKOTE [Suspect]
     Indication: CONVULSION
     Dosage: 500 MG, 2X/DAY
     Dates: start: 20080201
  3. RANITIDINE [Concomitant]
     Dosage: 75 MG, AS NEEDED
     Route: 048

REACTIONS (3)
  - CONVULSION [None]
  - DRUG INTERACTION [None]
  - UNEVALUABLE EVENT [None]
